FAERS Safety Report 8812671 (Version 1)
Quarter: 2012Q4

REPORT INFORMATION
  Report Type: 
  Country: GB (occurrence: GB)
  Receive Date: 20120927
  Receipt Date: 20120927
  Transmission Date: 20130627
  Serious: Yes (Life-Threatening)
  Sender: FDA-Public Use
  Company Number: PHHY2012GB083023

PATIENT
  Age: 45 Year
  Sex: Male

DRUGS (4)
  1. DIHYDROCODEINE [Suspect]
     Route: 048
  2. LORATADINE [Suspect]
     Route: 048
  3. MIRTAZAPINE [Suspect]
     Route: 048
  4. PREGABALIN [Suspect]
     Route: 048

REACTIONS (7)
  - Serotonin syndrome [Unknown]
  - Blood creatine phosphokinase increased [Unknown]
  - Somnolence [Unknown]
  - Hyperpyrexia [Unknown]
  - Myoclonus [Unknown]
  - Chromaturia [Unknown]
  - Overdose [Unknown]
